FAERS Safety Report 5857223-4 (Version None)
Quarter: 2008Q3

REPORT INFORMATION
  Report Type: 
  Country: None (occurrence: None)
  Receive Date: 20080821
  Receipt Date: 20080813
  Transmission Date: 20090109
  Serious: No
  Sender: FDA-Public Use
  Company Number: 2008AP001944

PATIENT
  Age: 47 Year
  Sex: Female

DRUGS (14)
  1. APO-K (POTASSIUM CHLORIDE) [Suspect]
     Dosage: PO, TAB; PO
     Route: 048
  2. DIGOXIN [Suspect]
  3. CITALOPRAM HYDROBROMIDE [Suspect]
  4. OMEPRAZOLE [Suspect]
  5. CARVEDILOL [Suspect]
  6. WARFARIN SODIUM [Suspect]
  7. ZOPICLONE (ZOPICLONE) [Suspect]
  8. DIAZEPAM [Suspect]
     Dosage: PRN
  9. CALCIUM (CALCIUM) [Suspect]
  10. LIPITOR [Suspect]
  11. IRON (IRON) [Suspect]
  12. SPIRONOLACTONE [Suspect]
  13. ZAROXOLYN [Suspect]
  14. MORPHINE [Suspect]
     Dosage: PRN

REACTIONS (3)
  - BONE DENSITY DECREASED [None]
  - CALCIUM DEFICIENCY [None]
  - WEIGHT DECREASED [None]
